FAERS Safety Report 7748250-0 (Version None)
Quarter: 2011Q3

REPORT INFORMATION
  Report Type: 
  Country: None (occurrence: None)
  Receive Date: 20110913
  Receipt Date: 20110906
  Transmission Date: 20111222
  Serious: Yes (Other)
  Sender: FDA-Public Use
  Company Number: US-PFIZER INC-2010054654

PATIENT
  Sex: Female
  Weight: 82.993 kg

DRUGS (19)
  1. TIMOPTIC-XE [Suspect]
     Dosage: UNK
     Dates: start: 20100101
  2. MULTI-VITAMINS [Concomitant]
     Dosage: UNK
  3. TRICOR [Concomitant]
     Indication: BLOOD CHOLESTEROL INCREASED
     Dosage: 145 MG, 1X/DAY
  4. MACRODANTIN [Concomitant]
     Indication: URINARY TRACT INFECTION
     Dosage: UNK
  5. XALATAN [Suspect]
     Indication: OPEN ANGLE GLAUCOMA
     Dosage: UNK
     Dates: start: 20040901, end: 20100401
  6. XALATAN [Suspect]
     Dosage: IN BOTH EYES
     Dates: start: 20100603, end: 20100603
  7. COMBIGAN [Suspect]
     Dosage: UNK
     Dates: start: 20090101
  8. OSCAL 500-D [Concomitant]
     Dosage: UNK
  9. TRICOR [Concomitant]
     Indication: BLOOD TRIGLYCERIDES INCREASED
  10. FISH OIL [Concomitant]
     Dosage: 1000 MG, 2X/DAY
  11. ZETIA [Concomitant]
     Indication: BLOOD TRIGLYCERIDES INCREASED
  12. CLARITIN [Concomitant]
     Dosage: UNK
  13. ACETYLSALICYLIC ACID [Concomitant]
     Indication: CARDIAC DISORDER
     Dosage: 81 MG, 1X/DAY
  14. XALATAN [Suspect]
     Dosage: BOTH EYES
     Dates: start: 20100604, end: 20100604
  15. PSYLLIUM HYDROPHILIC MUCILLOID [Concomitant]
  16. COZAAR [Concomitant]
     Indication: HYPERTENSION
     Dosage: 100 MG, 1X/DAY
  17. ZETIA [Concomitant]
     Indication: BLOOD CHOLESTEROL INCREASED
     Dosage: 10 MG, 1X/DAY
  18. TRAVATAN [Suspect]
     Dosage: UNK
     Dates: start: 20100101
  19. BENADRYL [Concomitant]
     Dosage: UNK

REACTIONS (14)
  - EYE SWELLING [None]
  - EYE INFECTION [None]
  - OCULAR HYPERAEMIA [None]
  - DRY SKIN [None]
  - SKIN EXFOLIATION [None]
  - EYE PRURITUS [None]
  - CONJUNCTIVITIS ALLERGIC [None]
  - EYELID OEDEMA [None]
  - BLINDNESS TRANSIENT [None]
  - INTRAOCULAR PRESSURE INCREASED [None]
  - EYE PAIN [None]
  - HYPERSENSITIVITY [None]
  - ERYTHEMA OF EYELID [None]
  - ASTHMA [None]
